FAERS Safety Report 9054475 (Version 1)
Quarter: 2013Q1

REPORT INFORMATION
  Report Type: Spontaneous
  Country: US (occurrence: US)
  Receive Date: 20130208
  Receipt Date: 20130208
  Transmission Date: 20140127
  Serious: No
  Sender: FDA-Public Use
  Company Number: US-GLAXOSMITHKLINE-A0983779A

PATIENT
  Sex: Female
  Weight: 77.3 kg

DRUGS (5)
  1. PAXIL [Suspect]
     Indication: DEPRESSION
  2. PROZAC [Concomitant]
  3. NORCO [Concomitant]
  4. ADDERALL [Concomitant]
  5. KEFLEX [Concomitant]

REACTIONS (1)
  - Drug ineffective [Unknown]
